FAERS Safety Report 17471445 (Version 1)
Quarter: 2020Q1

REPORT INFORMATION
  Report Type: Spontaneous
  Country: NZ (occurrence: NZ)
  Receive Date: 20200228
  Receipt Date: 20200228
  Transmission Date: 20200409
  Serious: Yes (Hospitalization, Other)
  Sender: FDA-Public Use
  Company Number: NZ-009507513-2002NZL009153

PATIENT
  Age: 71 Year
  Sex: Female

DRUGS (2)
  1. PEMBROLIZUMAB. [Suspect]
     Active Substance: PEMBROLIZUMAB
     Dosage: UNK, 3 WEEKLY
     Dates: start: 201708, end: 201708
  2. PEMBROLIZUMAB. [Suspect]
     Active Substance: PEMBROLIZUMAB
     Dosage: CYCLE 2
     Dates: start: 20170824, end: 20170921

REACTIONS (11)
  - Anaemia [Unknown]
  - Dyspnoea [Unknown]
  - Lymphoedema [Unknown]
  - Vitiligo [Unknown]
  - Colitis [Unknown]
  - Anaemia [Unknown]
  - Splenomegaly [Unknown]
  - Lymphadenopathy [Recovering/Resolving]
  - Rash [Unknown]
  - Wheezing [Unknown]
  - Haemolysis [Unknown]

NARRATIVE: CASE EVENT DATE: 20170831
